FAERS Safety Report 8741282 (Version 2)
Quarter: 2012Q4

REPORT INFORMATION
  Report Type: 
  Country: US (occurrence: US)
  Receive Date: 20120824
  Receipt Date: 20120917
  Transmission Date: 20130627
  Serious: No
  Sender: FDA-Public Use
  Company Number: US-ASTRAZENECA-2012SE11117

PATIENT
  Age: 52 Year
  Sex: Female

DRUGS (4)
  1. SYMBICORT PMDI [Suspect]
     Dosage: 80/4.5 mcg, unknown frequency
     Route: 055
  2. ATACAND HCT [Concomitant]
  3. NEXIUM [Concomitant]
  4. CRESTOR [Concomitant]

REACTIONS (5)
  - Gastrooesophageal reflux disease [Unknown]
  - Depression [Unknown]
  - Hypertension [Unknown]
  - Anxiety [Unknown]
  - Drug ineffective [Unknown]
